FAERS Safety Report 8572685-X (Version None)
Quarter: 2012Q3

REPORT INFORMATION
  Report Type: 
  Country: None (occurrence: None)
  Receive Date: 20120806
  Receipt Date: 19900402
  Transmission Date: 20120928
  Serious: Yes (Hospitalization)
  Sender: FDA-Public Use
  Company Number: US-ROCHE-1097049

PATIENT
  Sex: Female

DRUGS (3)
  1. HEPARIN [Concomitant]
  2. STREPTOKINASE [Concomitant]
  3. ACTIVASE [Suspect]
     Indication: MYOCARDIAL INFARCTION

REACTIONS (2)
  - ARRHYTHMIA [None]
  - CHEST PAIN [None]
